FAERS Safety Report 7061872-8 (Version None)
Quarter: 2010Q4

REPORT INFORMATION
  Report Type: 
  Country: None (occurrence: None)
  Receive Date: 20101026
  Receipt Date: 20101020
  Transmission Date: 20110411
  Serious: Yes (Hospitalization, Other)
  Sender: FDA-Public Use
  Company Number: BR-ABBOTT-10P-020-0666443-00

PATIENT
  Sex: Male
  Weight: 78 kg

DRUGS (9)
  1. HUMIRA [Suspect]
     Indication: CROHN'S DISEASE
     Dosage: INDUCTION DOSE
     Route: 058
     Dates: start: 20071214, end: 20071214
  2. HUMIRA [Suspect]
     Dates: start: 20091216, end: 20091216
  3. HUMIRA [Suspect]
     Dates: start: 20091230, end: 20091230
  4. HUMIRA [Suspect]
     Dates: start: 20100113, end: 20100601
  5. HAFIDIRIPINA (?) [Concomitant]
     Indication: CROHN'S DISEASE
     Route: 048
     Dates: start: 20000101
  6. SULFASALAZINE [Concomitant]
     Indication: CROHN'S DISEASE
     Route: 048
     Dates: start: 20000101
  7. SULFASALAZINE [Concomitant]
     Route: 048
  8. METICORTEN [Concomitant]
     Indication: CROHN'S DISEASE
     Route: 048
     Dates: start: 20000101
  9. METICORTEN [Concomitant]
     Dosage: 30MG DAILY

REACTIONS (3)
  - HYPERHIDROSIS [None]
  - PULMONARY OEDEMA [None]
  - TUBERCULOSIS [None]
